FAERS Safety Report 7688794-3 (Version None)
Quarter: 2011Q3

REPORT INFORMATION
  Report Type: 
  Country: None (occurrence: None)
  Receive Date: 20110817
  Receipt Date: 20110808
  Transmission Date: 20111222
  Serious: Yes (Hospitalization)
  Sender: FDA-Public Use
  Company Number: FR-ASTRAZENECA-2011SE45625

PATIENT
  Age: 4628 Day
  Sex: Female
  Weight: 24.8 kg

DRUGS (7)
  1. OMEPRAZOLE [Suspect]
     Indication: PROPHYLAXIS AGAINST GASTROINTESTINAL ULCER
     Route: 048
     Dates: start: 20110519, end: 20110524
  2. PRIMPERAN TAB [Suspect]
     Indication: PROPHYLAXIS OF NAUSEA AND VOMITING
     Route: 048
     Dates: start: 20110511, end: 20110523
  3. OMEPRAZOLE [Suspect]
     Route: 048
     Dates: start: 20110524
  4. LOVENOX [Suspect]
     Indication: THROMBOSIS PROPHYLAXIS
     Route: 058
     Dates: start: 20110505, end: 20110523
  5. PANTOPRAZOLE [Suspect]
     Indication: PROPHYLAXIS AGAINST GASTROINTESTINAL ULCER
     Route: 042
     Dates: start: 20110508, end: 20110518
  6. ACETAMINOPHEN [Suspect]
     Indication: PAIN
     Route: 048
     Dates: start: 20110519, end: 20110523
  7. ATARAX [Suspect]
     Indication: ANXIETY POSTOPERATIVE
     Route: 048
     Dates: start: 20110510, end: 20110522

REACTIONS (3)
  - HEPATITIS ACUTE [None]
  - VOMITING [None]
  - JAUNDICE [None]
